FAERS Safety Report 11445525 (Version 1)
Quarter: 2015Q3

REPORT INFORMATION
  Report Type: Spontaneous
  Country: US (occurrence: None)
  Receive Date: 20150901
  Receipt Date: 20150901
  Transmission Date: 20151125
  Serious: Yes (Disabling)
  Sender: FDA-Public Use
  Company Number: None

PATIENT
  Age: 46 Year
  Sex: Female
  Weight: 100.7 kg

DRUGS (10)
  1. FISH OIL [Concomitant]
     Active Substance: FISH OIL
  2. CLARITIN [Concomitant]
     Active Substance: LORATADINE
  3. VIT. B12 [Concomitant]
  4. CURCUMIN [Concomitant]
     Active Substance: CURCUMIN
  5. PHYTOSOME (TUMERIC) [Concomitant]
  6. FOLATE [Concomitant]
     Active Substance: FOLATE SODIUM
  7. VITAMIN D3 [Concomitant]
     Active Substance: CHOLECALCIFEROL
  8. NITROFURN MONO 100 MG CAP MACROBID MYLA [Suspect]
     Active Substance: NITROFURANTOIN\NITROFURANTOIN MONOHYDRATE
     Indication: URINARY TRACT INFECTION
     Dosage: 1 PILL
     Route: 048
     Dates: start: 20150802, end: 20150811
  9. DMSA [Concomitant]
  10. MELATONIN [Concomitant]
     Active Substance: MELATONIN

REACTIONS (9)
  - Paraesthesia [None]
  - Dizziness [None]
  - Pain in extremity [None]
  - Gait disturbance [None]
  - Nasal dryness [None]
  - Dry mouth [None]
  - Neuralgia [None]
  - Asthenia [None]
  - Dry throat [None]

NARRATIVE: CASE EVENT DATE: 20150805
